FAERS Safety Report 13905957 (Version 2)
Quarter: 2017Q3

REPORT INFORMATION
  Report Type: Spontaneous
  Country: DE (occurrence: DE)
  Receive Date: 20170825
  Receipt Date: 20170918
  Transmission Date: 20171127
  Serious: Yes (Life-Threatening, Other)
  Sender: FDA-Public Use
  Company Number: DE-PFIZER INC-2017369382

PATIENT
  Age: 64 Year
  Sex: Male

DRUGS (2)
  1. FLUCONAZOLE. [Suspect]
     Active Substance: FLUCONAZOLE
     Indication: CANDIDA INFECTION
     Dosage: UNK
  2. RIFAMPICIN [Suspect]
     Active Substance: RIFAMPIN
     Dosage: UNK

REACTIONS (2)
  - Toxicity to various agents [Unknown]
  - Acute hepatic failure [Unknown]
